FAERS Safety Report 23580860 (Version 1)
Quarter: 2024Q1

REPORT INFORMATION
  Report Type: Spontaneous
  Country: AT (occurrence: AT)
  Receive Date: 20240229
  Receipt Date: 20240229
  Transmission Date: 20240410
  Serious: Yes (Hospitalization, Other)
  Sender: FDA-Public Use
  Company Number: AT-BAXTER-2023BAX038021

PATIENT
  Age: 71 Year
  Sex: Male
  Weight: 69 kg

DRUGS (48)
  1. CYCLOPHOSPHAMIDE [Suspect]
     Active Substance: CYCLOPHOSPHAMIDE
     Dosage: 1300 MG, EVERY 3 WEEKS
     Route: 042
     Dates: start: 20231009, end: 20231009
  2. CYCLOPHOSPHAMIDE [Suspect]
     Active Substance: CYCLOPHOSPHAMIDE
     Dosage: 1300 MG, EVERY 3 WEEKS
     Route: 042
     Dates: start: 20231106
  3. CYCLOPHOSPHAMIDE [Suspect]
     Active Substance: CYCLOPHOSPHAMIDE
     Indication: Diffuse large B-cell lymphoma stage IV
     Dosage: 1320 MG, EVERY 3 WEEKS
     Route: 042
     Dates: end: 20230918
  4. CYCLOPHOSPHAMIDE [Suspect]
     Active Substance: CYCLOPHOSPHAMIDE
     Dosage: 1340 MG, EVERY 3 WEEKS
     Route: 042
     Dates: start: 20230807
  5. DOXORUBICIN [Suspect]
     Active Substance: DOXORUBICIN
     Dosage: 86 MG, EVERY 3 WEEKS
     Route: 042
     Dates: start: 20231009, end: 20231009
  6. DOXORUBICIN [Suspect]
     Active Substance: DOXORUBICIN
     Dosage: 86 MG, EVERY 3 WEEKS
     Route: 042
     Dates: start: 20231106
  7. DOXORUBICIN [Suspect]
     Active Substance: DOXORUBICIN
     Indication: Diffuse large B-cell lymphoma
     Dosage: 88 MG, EVERY 3 WEEKS ROUTE OF ADMIN (FREE TEXT): UNKNOWN ROUTE
     Route: 065
     Dates: start: 20230807, end: 20230918
  8. DOXORUBICIN [Suspect]
     Active Substance: DOXORUBICIN
     Dosage: 90 MG, EVERY 3 WEEKS
     Route: 042
     Dates: start: 20230807
  9. EPCORITAMAB [Suspect]
     Active Substance: EPCORITAMAB
     Dosage: 0.16 MG PRIMING DOSE; C1, D1, TOTAL
     Route: 058
     Dates: start: 20230807, end: 20230807
  10. EPCORITAMAB [Suspect]
     Active Substance: EPCORITAMAB
     Dosage: 0.16 MG RE-PRIMIMG DOSE, TOTAL
     Route: 058
     Dates: start: 20230828, end: 20230828
  11. EPCORITAMAB [Suspect]
     Active Substance: EPCORITAMAB
     Indication: Diffuse large B-cell lymphoma
     Dosage: 0.8 MG INTERMEDIATE DOSE, TOTAL
     Route: 058
     Dates: start: 20230905, end: 20230905
  12. EPCORITAMAB [Suspect]
     Active Substance: EPCORITAMAB
     Dosage: 0.8 MG INTERMEDIATE DOSE; C1, D8, TOTAL
     Route: 058
     Dates: start: 20230814, end: 20230814
  13. EPCORITAMAB [Suspect]
     Active Substance: EPCORITAMAB
     Dosage: 48 MG C1 (STEP UP) , CYCLES 2-4 (21 DAY CYCLE, EVERY 3 WEEKS) PER PROTOCOL, EVERY 1 WEEKS
     Route: 058
     Dates: start: 20231106
  14. EPCORITAMAB [Suspect]
     Active Substance: EPCORITAMAB
     Dosage: 48 MG C1 (STEP UP), CYCLES 2-4 (21 DAY CYCLE, WEEKS) PER PROTOCOL, EVERY 1 WEEKS
     Route: 058
     Dates: start: 20230807, end: 20231016
  15. EPCORITAMAB [Suspect]
     Active Substance: EPCORITAMAB
     Dosage: 48 MG FULL DOSE, EVERY 1 WEEKS
     Route: 058
     Dates: start: 20230918, end: 20230927
  16. EPCORITAMAB [Suspect]
     Active Substance: EPCORITAMAB
     Dosage: 48 MG FULL DOSE, EVERY 1 WEEKS
     Route: 058
     Dates: start: 20231009
  17. PREDNISONE [Suspect]
     Active Substance: PREDNISONE
     Indication: Diffuse large B-cell lymphoma
     Dosage: 100 MG C1 6, D1-5, EVERY 1 DAYS
     Route: 048
     Dates: start: 20231106
  18. PREDNISONE [Suspect]
     Active Substance: PREDNISONE
     Dosage: 100 MG C1-6, DAY 1-5, EVERY 1 DAYS
     Route: 048
     Dates: start: 20230807, end: 20231013
  19. RITUXIMAB [Suspect]
     Active Substance: RITUXIMAB
     Indication: Diffuse large B-cell lymphoma
     Dosage: 650 MG, EVERY 3 WEEKS
     Route: 042
     Dates: start: 20231009, end: 20231009
  20. RITUXIMAB [Suspect]
     Active Substance: RITUXIMAB
     Dosage: 650 MG, EVERY 3 WEEKS
     Route: 042
     Dates: start: 20231106
  21. RITUXIMAB [Suspect]
     Active Substance: RITUXIMAB
     Dosage: 660 MG, EVERY 3 WEEKS
     Route: 042
     Dates: start: 20230807, end: 20230918
  22. MESNA [Suspect]
     Active Substance: MESNA
     Indication: Renal disorder prophylaxis
     Dosage: 1200 MG, EVERY 3 WEEKS ROUTE OF ADMIN (FREE TEXT): UNKNOWN ROUTE
     Route: 065
     Dates: start: 20230807
  23. MESNA [Suspect]
     Active Substance: MESNA
     Dosage: 400 MG, EVERY 3 WEEKS ROUTE OF ADMIN (FREE TEXT): UNKNOWN ROUTE
     Route: 065
     Dates: start: 20230807
  24. VINCRISTINE [Suspect]
     Active Substance: VINCRISTINE
     Indication: Diffuse large B-cell lymphoma
     Dosage: 2 MG, EVERY 3 WEEKS
     Route: 042
     Dates: start: 20231106
  25. VINCRISTINE [Suspect]
     Active Substance: VINCRISTINE
     Dosage: 2 MG, EVERY 3 WEEKS
     Route: 042
     Dates: start: 20230807, end: 20231009
  26. VINCRISTINE [Suspect]
     Active Substance: VINCRISTINE
     Dosage: 2 MG, EVERY 3 WEEKS
     Route: 042
     Dates: start: 20230807
  27. ALLOPURINOL [Concomitant]
     Active Substance: ALLOPURINOL
     Indication: Product used for unknown indication
     Route: 065
  28. DEXAMETHASONE [Concomitant]
     Active Substance: DEXAMETHASONE
     Indication: Product used for unknown indication
     Route: 065
  29. ERYTHROPOIETIN [Concomitant]
     Active Substance: ERYTHROPOIETIN
     Indication: Anaemia
     Dosage: 30000 IU, EVERY 1 WEEKS ROUTE OF ADMIN (FREE TEXT): UNKNOWN ROUTE
     Route: 065
     Dates: start: 20230927
  30. ENOXAPARIN SODIUM [Concomitant]
     Active Substance: ENOXAPARIN SODIUM
     Indication: Thrombosis prophylaxis
     Dosage: 4000 IU, EVERY 1 DAYS ROUTE OF ADMIN (FREE TEXT): UNKNOWN ROUTE
     Route: 065
     Dates: start: 20230804, end: 20230928
  31. Lidaprim [Concomitant]
     Indication: Antifungal prophylaxis
     Dosage: 2 DOSAGE FORM, 3/WEEKS ROUTE OF ADMIN (FREE TEXT): UNKNOWN ROUTE
     Route: 065
     Dates: start: 20230807
  32. LIPEGFILGRASTIM [Concomitant]
     Active Substance: LIPEGFILGRASTIM
     Indication: Prophylaxis
     Dosage: 6 MG, EVERY 3 WEEKS ROUTE OF ADMIN (FREE TEXT): UNKNOWN ROUTE
     Route: 065
     Dates: start: 20230809
  33. ACETAMINOPHEN [Concomitant]
     Active Substance: ACETAMINOPHEN
     Indication: Antipyresis
     Dosage: 1000 MG, EVERY 1 WEEKS ROUTE OF ADMIN (FREE TEXT): UNKNOWN ROUTE
     Route: 065
     Dates: start: 20230807
  34. POLYETHYLENE GLYCOL 3350\POTASSIUM CHLORIDE\SODIUM BICARBONATE\SODIUM [Concomitant]
     Active Substance: POLYETHYLENE GLYCOL 3350\POTASSIUM CHLORIDE\SODIUM BICARBONATE\SODIUM CHLORIDE
     Indication: Constipation
     Dosage: 1 BAG, AS NECESSARY ROUTE OF ADMIN (FREE TEXT): UNKNOWN ROUTE
     Route: 065
     Dates: start: 20230912
  35. POLYETHYLENE GLYCOL 3350\POTASSIUM CHLORIDE\SODIUM BICARBONATE\SODIUM [Concomitant]
     Active Substance: POLYETHYLENE GLYCOL 3350\POTASSIUM CHLORIDE\SODIUM BICARBONATE\SODIUM CHLORIDE
     Dosage: 1 BAG, AS NECESSARY ROUTE OF ADMIN (FREE TEXT): UNKNOWN ROUTE
     Route: 065
     Dates: start: 20230828
  36. NORVASC [Concomitant]
     Active Substance: AMLODIPINE BESYLATE
     Indication: Hypertension
     Dosage: 5 MG, EVERY 1 DAYS ROUTE OF ADMIN (FREE TEXT): UNKNOWN ROUTE
     Route: 065
     Dates: start: 20230803, end: 20231008
  37. PANTOPRAZOLE SODIUM [Concomitant]
     Active Substance: PANTOPRAZOLE SODIUM
     Indication: Gastritis prophylaxis
     Dosage: 40 MG, EVERY 1 DAYS ROUTE OF ADMIN (FREE TEXT): UNKNOWN ROUTE
     Route: 065
     Dates: start: 20230807
  38. Paspertin [Concomitant]
     Indication: Prophylaxis of nausea and vomiting
     Dosage: 1 DOSAGE FORM, AS NECESSARY ROUTE OF ADMIN (FREE TEXT): UNKNOWN ROUTE
     Route: 065
     Dates: start: 20230808
  39. PERFALGAN [Concomitant]
     Active Substance: ACETAMINOPHEN
     Indication: Product used for unknown indication
     Route: 065
  40. PREDNISOLONE [Concomitant]
     Active Substance: PREDNISOLONE
     Indication: Product used for unknown indication
     Route: 065
  41. RAMIPRIL [Concomitant]
     Active Substance: RAMIPRIL
     Dosage: 10 MG, EVERY 1 DAYS, START DATE: 2013 ROUTE OF ADMIN (FREE TEXT): UNKNOWN ROUTE
     Route: 065
     Dates: end: 20230821
  42. RAMIPRIL [Concomitant]
     Active Substance: RAMIPRIL
     Indication: Hypertension
     Dosage: 5 MG, EVERY 1 DAYS ROUTE OF ADMIN (FREE TEXT): UNKNOWN ROUTE
     Route: 065
     Dates: start: 20230923, end: 20231003
  43. RAMIPRIL [Concomitant]
     Active Substance: RAMIPRIL
     Dosage: 5 MG, EVERY 1 DAYS ROUTE OF ADMIN (FREE TEXT): UNKNOWN ROUTE
     Route: 065
     Dates: start: 20231011
  44. LEVOFLOXACIN [Concomitant]
     Active Substance: LEVOFLOXACIN
     Indication: Cytokine release syndrome
     Dosage: 500 MG, EVERY 1 DAYS ROUTE OF ADMIN (FREE TEXT): UNKNOWN ROUTE
     Route: 065
     Dates: start: 20230919, end: 20230920
  45. VALACYCLOVIR HYDROCHLORIDE [Concomitant]
     Active Substance: VALACYCLOVIR HYDROCHLORIDE
     Indication: Product used for unknown indication
     Route: 065
  46. LEVOCETIRIZINE DIHYDROCHLORIDE [Concomitant]
     Active Substance: LEVOCETIRIZINE DIHYDROCHLORIDE
     Indication: Antiallergic therapy
     Dosage: 5 MG, EVERY 1 WEEKS ROUTE OF ADMIN (FREE TEXT): UNKNOWN ROUTE
     Route: 065
     Dates: start: 20230807
  47. ZOFRAN [Concomitant]
     Active Substance: ONDANSETRON HYDROCHLORIDE
     Indication: Prophylaxis of nausea and vomiting
     Dosage: 8 MG, AS NECESSARY ROUTE OF ADMIN (FREE TEXT): UNKNOWN ROUTE
     Route: 065
     Dates: start: 20230828
  48. ZOFRAN [Concomitant]
     Active Substance: ONDANSETRON HYDROCHLORIDE
     Dosage: 8 MG, AS NECESSARY ROUTE OF ADMIN (FREE TEXT): UNKNOWN ROUTE
     Route: 065
     Dates: start: 20230807

REACTIONS (8)
  - Acute kidney injury [Recovered/Resolved]
  - Acute kidney injury [Recovered/Resolved]
  - Acute kidney injury [Recovered/Resolved]
  - White blood cell count increased [Unknown]
  - Tachycardia [Recovered/Resolved]
  - C-reactive protein increased [Recovered/Resolved]
  - C-reactive protein increased [Recovered/Resolved]
  - C-reactive protein increased [Recovered/Resolved]

NARRATIVE: CASE EVENT DATE: 20230821
